FAERS Safety Report 7405940-7 (Version None)
Quarter: 2011Q2

REPORT INFORMATION
  Report Type: 
  Country: None (occurrence: None)
  Receive Date: 20110406
  Receipt Date: 20110406
  Transmission Date: 20111010
  Serious: No
  Sender: FDA-Public Use
  Company Number: None

PATIENT
  Age: 55 Year
  Sex: Female

DRUGS (3)
  1. TAXOL [Suspect]
     Dates: start: 20100505, end: 20100519
  2. CARBOPLATIN [Suspect]
     Dates: start: 20100505, end: 20100519
  3. NEXIUM [Suspect]
     Dates: start: 20100515, end: 20100616

REACTIONS (4)
  - CHOLESTASIS [None]
  - LIVER INJURY [None]
  - CHOLELITHIASIS [None]
  - HEPATOMEGALY [None]
